FAERS Safety Report 6422773-9 (Version None)
Quarter: 2009Q4

REPORT INFORMATION
  Report Type: 
  Country: None (occurrence: None)
  Receive Date: 20091102
  Receipt Date: 20091026
  Transmission Date: 20100525
  Serious: Yes (Death)
  Sender: FDA-Public Use
  Company Number: US-CELGENEUS-163-21880-09100719

PATIENT
  Sex: Male

DRUGS (3)
  1. REVLIMID [Suspect]
     Indication: MULTIPLE MYELOMA
     Route: 048
     Dates: start: 20081201, end: 20090519
  2. REVLIMID [Suspect]
     Dosage: 25MG-20MG
     Route: 048
     Dates: start: 20080421
  3. REVLIMID [Suspect]
     Route: 048
     Dates: start: 20081101

REACTIONS (6)
  - ASTHENIA [None]
  - BENIGN PROSTATIC HYPERPLASIA [None]
  - MALIGNANT NEOPLASM PROGRESSION [None]
  - MULTIPLE MYELOMA [None]
  - PNEUMONIA [None]
  - THROMBOCYTOPENIA [None]
